FAERS Safety Report 13662123 (Version 9)
Quarter: 2017Q4

REPORT INFORMATION
  Report Type: Report from Study
  Country: US (occurrence: US)
  Receive Date: 20170616
  Receipt Date: 20171020
  Transmission Date: 20180320
  Serious: Yes (Death, Hospitalization)
  Sender: FDA-Public Use
  Company Number: US-ACTELION-A-US2017-152080

PATIENT
  Age: 73 Year
  Sex: Female
  Weight: 72.56 kg

DRUGS (6)
  1. UPTRAVI [Suspect]
     Active Substance: SELEXIPAG
     Indication: PULMONARY ARTERIAL HYPERTENSION
     Dosage: 200 MCG, BID
     Route: 048
  2. UPTRAVI [Suspect]
     Active Substance: SELEXIPAG
     Dosage: 400 MCG AM, 200 MCG PM
     Route: 048
  3. ADEMPAS [Suspect]
     Active Substance: RIOCIGUAT
     Dosage: 2 MG, UNK
     Route: 065
  4. ADEMPAS [Suspect]
     Active Substance: RIOCIGUAT
     Indication: PRODUCT USED FOR UNKNOWN INDICATION
     Dosage: 2.5 MG, TID
     Route: 065
     Dates: start: 20170625
  5. UPTRAVI [Suspect]
     Active Substance: SELEXIPAG
     Dosage: 400 MCG, BID
     Route: 048
  6. WARFARIN [Concomitant]
     Active Substance: WARFARIN

REACTIONS (34)
  - Blood sodium decreased [Unknown]
  - Blood pressure abnormal [Unknown]
  - Diarrhoea [Unknown]
  - Nausea [Unknown]
  - Blood sodium abnormal [Unknown]
  - Blood potassium abnormal [Unknown]
  - Hypotension [Unknown]
  - Panic attack [Unknown]
  - Oedema [Unknown]
  - Vision blurred [Unknown]
  - Dyspepsia [Unknown]
  - Dyspnoea [Unknown]
  - Pain [Unknown]
  - Abdominal pain [Unknown]
  - Sleep disorder [Unknown]
  - Decreased interest [Unknown]
  - Anxiety [Unknown]
  - Dehydration [Unknown]
  - Ascites [Unknown]
  - Discomfort [Unknown]
  - Abdominal discomfort [Unknown]
  - Abdominal pain upper [Unknown]
  - Depression [Unknown]
  - Dyspnoea exertional [Unknown]
  - Headache [Unknown]
  - Abdominal distension [Unknown]
  - Restlessness [Unknown]
  - Tremor [Unknown]
  - Influenza like illness [Unknown]
  - Chest discomfort [Unknown]
  - Pneumonia [Unknown]
  - Cardiac arrest [Fatal]
  - Fluid retention [Recovering/Resolving]
  - Blood electrolytes abnormal [Unknown]

NARRATIVE: CASE EVENT DATE: 20170627
